FAERS Safety Report 8302653-4 (Version None)
Quarter: 2012Q2

REPORT INFORMATION
  Report Type: 
  Country: None (occurrence: None)
  Receive Date: 20120420
  Receipt Date: 20120417
  Transmission Date: 20120825
  Serious: Yes (Life-Threatening)
  Sender: FDA-Public Use
  Company Number: CA-ELI_LILLY_AND_COMPANY-CA201204006108

PATIENT
  Sex: Female

DRUGS (5)
  1. HUMALOG [Suspect]
     Dosage: 33 U, EACH EVENING
  2. HUMALOG [Suspect]
     Dosage: 23 U, EACH MORNING
     Dates: start: 20100101
  3. LANTUS [Concomitant]
     Dosage: 100 U, EACH EVENING
  4. LANTUS [Concomitant]
     Dosage: 57 U, EACH MORNING
  5. HUMALOG [Suspect]
     Dosage: 31 U, OTHER
     Dates: start: 20100101

REACTIONS (10)
  - MEMORY IMPAIRMENT [None]
  - HEPATOMEGALY [None]
  - SPLENOMEGALY [None]
  - BLOOD GLUCOSE INCREASED [None]
  - SEPSIS [None]
  - LIFE SUPPORT [None]
  - ARTHRITIS [None]
  - OEDEMA PERIPHERAL [None]
  - VISION BLURRED [None]
  - DRUG INEFFECTIVE [None]
